FAERS Safety Report 7249957-4 (Version None)
Quarter: 2011Q1

REPORT INFORMATION
  Report Type: 
  Country: None (occurrence: None)
  Receive Date: 20110128
  Receipt Date: 20101027
  Transmission Date: 20110831
  Serious: No
  Sender: FDA-Public Use
  Company Number: A0890178A

PATIENT
  Age: 52 Year
  Sex: Male
  Weight: 75.2 kg

DRUGS (1)
  1. WELLBUTRIN [Suspect]

REACTIONS (2)
  - MENTAL DISORDER [None]
  - HYPOAESTHESIA [None]
